FAERS Safety Report 4346486-2 (Version None)
Quarter: 2004Q2

REPORT INFORMATION
  Report Type: 
  Country: None (occurrence: None)
  Receive Date: 20040426
  Receipt Date: 20030805
  Transmission Date: 20050107
  Serious: Yes (Other)
  Sender: FDA-Public Use
  Company Number: US-BRISTOL-MYERS SQUIBB COMPANY-12347605

PATIENT
  Age: 58 Year
  Sex: Female
  Weight: 88 kg

DRUGS (6)
  1. PARAPLATIN [Suspect]
     Indication: NASOPHARYNGEAL CANCER
     Dosage: PRIOR ADMINISTRATION: SEP-2002 THROUGH JAN-2003; RESTARTED ON 15-JUL-2003.
     Route: 042
     Dates: start: 20030805, end: 20030805
  2. DECADRON [Concomitant]
     Indication: PREMEDICATION
     Route: 042
     Dates: start: 20030805, end: 20030805
  3. ANZEMET [Concomitant]
     Indication: PREMEDICATION
     Dates: start: 20030805, end: 20030805
  4. BEXTRA [Concomitant]
     Route: 048
     Dates: start: 20030805, end: 20030805
  5. NEURONTIN [Concomitant]
     Route: 048
     Dates: start: 20030805, end: 20030805
  6. TAXOTERE [Concomitant]
     Dosage: PRIOR ADMINISTRATION: SEP-2002 THROUGH JAN-2003; RESTARTED ON 15-JUL-2003.
     Dates: start: 20030715

REACTIONS (1)
  - HYPERSENSITIVITY [None]
